FAERS Safety Report 15892098 (Version 1)
Quarter: 2019Q1

REPORT INFORMATION
  Report Type: Report from Study
  Country: US (occurrence: US)
  Receive Date: 20190130
  Receipt Date: 20190130
  Transmission Date: 20190417
  Serious: No
  Sender: FDA-Public Use
  Company Number: US-EXELIXIS-CABO-18014530

PATIENT
  Age: 77 Year
  Sex: Male

DRUGS (1)
  1. CABOMETYX [Suspect]
     Active Substance: CABOZANTINIB S-MALATE
     Indication: HEPATIC CANCER
     Dosage: 60 MG, QD (ONCE IN MORNING, W/O FOOD)
     Dates: start: 20180602, end: 201806

REACTIONS (7)
  - Pharyngeal ulceration [Unknown]
  - Stomatitis [Unknown]
  - Off label use [Unknown]
  - Dehydration [Unknown]
  - Blood magnesium decreased [Recovered/Resolved]
  - Weight decreased [Unknown]
  - Asthenia [Not Recovered/Not Resolved]

NARRATIVE: CASE EVENT DATE: 201806
